FAERS Safety Report 8095423-6 (Version None)
Quarter: 2011Q4

REPORT INFORMATION
  Report Type: 
  Country: None (occurrence: None)
  Receive Date: 20111222
  Receipt Date: 20111027
  Transmission Date: 20120403
  Serious: Yes (Hospitalization)
  Sender: FDA-Public Use
  Company Number: UTC-010722

PATIENT
  Age: 42 Year
  Sex: Male
  Weight: 137.7 kg

DRUGS (3)
  1. COUMADIN [Concomitant]
  2. TYVASO [Suspect]
     Indication: PULMONARY ARTERIAL HYPERTENSION
     Dosage: 18 TO 54 MICROGRAMS (4 IN 1 D), INHALATION
     Route: 055
     Dates: start: 20110505
  3. TRACLEER [Concomitant]

REACTIONS (5)
  - PULMONARY HYPERTENSION [None]
  - ANAEMIA [None]
  - PNEUMONIA [None]
  - SLEEP APNOEA SYNDROME [None]
  - MEDICATION ERROR [None]
